FAERS Safety Report 12587464 (Version 2)
Quarter: 2016Q3

REPORT INFORMATION
  Report Type: Report from Study
  Country: CA (occurrence: CA)
  Receive Date: 20160725
  Receipt Date: 20160802
  Transmission Date: 20161109
  Serious: Yes (Other)
  Sender: FDA-Public Use
  Company Number: CA-PFIZER INC-2016346590

PATIENT
  Age: 76 Year
  Sex: Male

DRUGS (8)
  1. ZYDELIG [Suspect]
     Active Substance: IDELALISIB
     Dosage: 150 MG, UNK
  2. IDELALISIB [Suspect]
     Active Substance: IDELALISIB
     Dosage: 150 MG, 2X/DAY
     Route: 048
     Dates: start: 20150925, end: 20151016
  3. IDELALISIB [Suspect]
     Active Substance: IDELALISIB
     Dosage: 150 MG, 2X/DAY
     Route: 048
     Dates: start: 201511, end: 20160314
  4. IDELALISIB [Suspect]
     Active Substance: IDELALISIB
     Indication: B-CELL LYMPHOMA
     Dosage: 150 MG, UNK
     Route: 048
     Dates: start: 201508
  5. ADVIL [Suspect]
     Active Substance: IBUPROFEN
     Dosage: UNK
     Dates: end: 20151110
  6. IDELALISIB [Suspect]
     Active Substance: IDELALISIB
     Dosage: 100 MG, 2X/DAY
     Route: 048
     Dates: start: 201510, end: 201511
  7. IDELALISIB [Suspect]
     Active Substance: IDELALISIB
     Dosage: 150 MG, 2X/DAY
     Route: 048
     Dates: start: 20160320
  8. CELEBREX [Suspect]
     Active Substance: CELECOXIB
     Dosage: UNK

REACTIONS (14)
  - Blood urine present [Recovered/Resolved]
  - Fall [Unknown]
  - Ototoxicity [Unknown]
  - Haemorrhage [Unknown]
  - Rib fracture [Unknown]
  - Accident [Unknown]
  - Oral infection [Unknown]
  - Thrombosis [Recovered/Resolved]
  - Intestinal obstruction [Unknown]
  - Middle insomnia [Unknown]
  - Dizziness [Unknown]
  - Rhinitis [Unknown]
  - Abdominal distension [Unknown]
  - Abdominal pain upper [Unknown]

NARRATIVE: CASE EVENT DATE: 20151015
